FAERS Safety Report 9449266 (Version 1)
Quarter: 2013Q3

REPORT INFORMATION
  Report Type: Report from Study
  Country: BR (occurrence: BR)
  Receive Date: 20130808
  Receipt Date: 20130808
  Transmission Date: 20140515
  Serious: Yes (Other)
  Sender: FDA-Public Use
  Company Number: ALCN2013BR000876

PATIENT
  Age: 65 Year
  Sex: Female
  Weight: 60 kg

DRUGS (1)
  1. TRAVATAN [Suspect]
     Dosage: UNK UNK, QD
     Route: 047
     Dates: start: 2002

REACTIONS (1)
  - Diabetes mellitus [Not Recovered/Not Resolved]
